FAERS Safety Report 8984750 (Version 2)
Quarter: 2013Q1

REPORT INFORMATION
  Report Type: Spontaneous
  Country: US (occurrence: US)
  Receive Date: 20121225
  Receipt Date: 20130312
  Transmission Date: 20140127
  Serious: Yes (Other)
  Sender: FDA-Public Use
  Company Number: US-JNJFOC-20121206631

PATIENT
  Age: 42 Year
  Sex: Female

DRUGS (9)
  1. REMICADE [Suspect]
     Indication: RHEUMATOID ARTHRITIS
     Dosage: THE PATIENT^S AGE AT THE START OF INFLIXIMAB THERAPY WAS 36 YEARS
     Route: 042
     Dates: start: 1999, end: 20120924
  2. REMICADE [Suspect]
     Indication: CROHN^S DISEASE
     Dosage: THE PATIENT^S AGE AT THE START OF INFLIXIMAB THERAPY WAS 36 YEARS
     Route: 042
     Dates: start: 1999, end: 20120924
  3. DEXILANT [Concomitant]
     Indication: GASTROOESOPHAGEAL REFLUX DISEASE
     Route: 048
     Dates: start: 201207
  4. DIOVAN/HCT [Concomitant]
     Indication: HYPERTENSION
     Dosage: 12.5/80 MG
     Route: 048
     Dates: start: 201204
  5. TRIAMCINOLONE [Concomitant]
     Indication: RASH
     Route: 061
     Dates: start: 2012
  6. IRON SUPPLEMENTS [Concomitant]
     Route: 065
  7. LASIX [Concomitant]
     Dosage: FOR 3 DAYS
     Route: 048
  8. COLACE [Concomitant]
     Route: 048
  9. NORCO [Concomitant]
     Indication: PAIN
     Dosage: 10-325MG  AS NEEDED
     Route: 048

REACTIONS (5)
  - Haematological malignancy [Unknown]
  - Procedural pain [Unknown]
  - Pleural effusion [Unknown]
  - Anaemia [Unknown]
  - Neuroendocrine tumour [Unknown]
